FAERS Safety Report 5010782-6 (Version None)
Quarter: 2006Q2

REPORT INFORMATION
  Report Type: 
  Country: None (occurrence: None)
  Receive Date: 20060524
  Receipt Date: 20060524
  Transmission Date: 20061013
  Serious: Yes (Hospitalization)
  Sender: FDA-Public Use
  Company Number: None

PATIENT
  Age: 63 Year
  Sex: Male

DRUGS (3)
  1. GLEEVEC [Suspect]
     Indication: GLIOBLASTOMA MULTIFORME
     Dosage: 400 MG QD PO
     Route: 048
     Dates: start: 20060309, end: 20060502
  2. HYDROXYUREA [Suspect]
     Indication: GLIOBLASTOMA MULTIFORME
     Dosage: 500 MG BID BID PO
     Route: 048
     Dates: start: 20060309, end: 20060502
  3. RAD001 [Suspect]
     Dosage: 2.5 MG QOD PO
     Route: 048

REACTIONS (17)
  - ANOREXIA [None]
  - ASTHENIA [None]
  - CONVULSION [None]
  - DECREASED APPETITE [None]
  - DEEP VEIN THROMBOSIS [None]
  - DRUG INEFFECTIVE [None]
  - DYSPHAGIA [None]
  - FATIGUE [None]
  - HAEMOGLOBIN DECREASED [None]
  - HYPONATRAEMIA [None]
  - ILEUS [None]
  - ORAL CANDIDIASIS [None]
  - PNEUMOCYSTIS JIROVECI PNEUMONIA [None]
  - PNEUMONITIS [None]
  - RENAL FAILURE ACUTE [None]
  - SINUSITIS [None]
  - UPPER RESPIRATORY TRACT INFECTION [None]
